FAERS Safety Report 9153421 (Version 2)
Quarter: 2013Q2

REPORT INFORMATION
  Report Type: Spontaneous
  Country: BE (occurrence: BE)
  Receive Date: 20130311
  Receipt Date: 20130408
  Transmission Date: 20140414
  Serious: Yes (Hospitalization)
  Sender: FDA-Public Use
  Company Number: BE-JNJFOC-20130300564

PATIENT
  Age: 80 Year
  Sex: Female

DRUGS (14)
  1. XARELTO [Suspect]
     Indication: CEREBROVASCULAR ACCIDENT PROPHYLAXIS
     Route: 048
     Dates: start: 20130201, end: 20130210
  2. XARELTO [Suspect]
     Indication: ATRIAL FIBRILLATION
     Route: 048
     Dates: start: 20130201, end: 20130210
  3. DYNATONIC [Concomitant]
     Route: 065
  4. TAMBOCOR [Concomitant]
     Route: 065
  5. CORDARONE [Concomitant]
     Indication: ATRIAL FIBRILLATION
     Route: 065
  6. SIMVASTATINE [Concomitant]
     Indication: HYPERCHOLESTEROLAEMIA
     Route: 065
  7. DUOVENT [Concomitant]
     Indication: CHRONIC OBSTRUCTIVE PULMONARY DISEASE
     Route: 055
  8. ACTRAPID [Concomitant]
     Indication: DIABETES MELLITUS
     Route: 065
  9. ZOLPIDEM [Concomitant]
     Route: 065
  10. MEDROL [Concomitant]
     Route: 065
  11. ZESTRIL [Concomitant]
     Indication: HYPERTENSION
     Route: 065
  12. PANTOPRAZOLE [Concomitant]
     Indication: GASTRIC ULCER
     Route: 065
  13. ASAFLOW [Concomitant]
     Indication: ATRIAL FIBRILLATION
     Route: 065
     Dates: start: 20130211
  14. NOVORAPID [Concomitant]
     Indication: DIABETES MELLITUS
     Route: 065

REACTIONS (4)
  - Coma [Recovered/Resolved]
  - Hemiplegia [Unknown]
  - Ischaemic stroke [Recovering/Resolving]
  - Rash [Unknown]
